FAERS Safety Report 7277093-X (Version None)
Quarter: 2011Q1

REPORT INFORMATION
  Report Type: 
  Country: None (occurrence: None)
  Receive Date: 20110207
  Receipt Date: 20110131
  Transmission Date: 20110831
  Serious: Yes (Other)
  Sender: FDA-Public Use
  Company Number: BR-PFIZER INC-2010159599

PATIENT
  Age: 44 Year
  Sex: Female
  Weight: 74 kg

DRUGS (11)
  1. DEPO-PROVERA [Suspect]
     Indication: CONTRACEPTION
     Dosage: 150 MG, UNK
     Route: 030
     Dates: start: 20101112
  2. AKINETON [Concomitant]
     Indication: SCHIZOPHRENIA
  3. DIAZEPAM [Concomitant]
     Indication: DEPRESSION
  4. DEPO-PROVERA [Suspect]
     Indication: MENORRHAGIA
  5. METFORMIN [Concomitant]
     Indication: TYPE 2 DIABETES MELLITUS
     Dosage: UNK
     Dates: start: 20050101
  6. AKINETON [Concomitant]
     Indication: DEPRESSION
  7. HALDOL [Concomitant]
     Indication: DELIRIUM
  8. AKINETON [Concomitant]
     Indication: DELIRIUM
     Dosage: .5 MG, UNK
     Dates: start: 19830101
  9. DIAZEPAM [Concomitant]
     Indication: SLEEP DISORDER
     Dosage: 10 MG, UNK
     Dates: start: 19830101
  10. HALDOL [Concomitant]
     Indication: DEPRESSION
  11. HALDOL [Concomitant]
     Indication: SCHIZOPHRENIA
     Dosage: 5 MG, UNK
     Dates: start: 19830101

REACTIONS (16)
  - MENSTRUATION DELAYED [None]
  - NERVOUSNESS [None]
  - DROOLING [None]
  - SYNCOPE [None]
  - NERVE INJURY [None]
  - OVARIAN CYST [None]
  - WEIGHT DECREASED [None]
  - TREMOR [None]
  - POLLAKIURIA [None]
  - BEDRIDDEN [None]
  - VAGINAL DISCHARGE [None]
  - FINGER DEFORMITY [None]
  - MENSTRUAL DISORDER [None]
  - DIZZINESS [None]
  - ARTHROPATHY [None]
  - HYPOAESTHESIA FACIAL [None]
